FAERS Safety Report 19737402 (Version 2)
Quarter: 2021Q4

REPORT INFORMATION
  Report Type: Spontaneous
  Country: US (occurrence: US)
  Receive Date: 20210824
  Receipt Date: 20211224
  Transmission Date: 20220303
  Serious: Yes (Death, Other)
  Sender: FDA-Public Use
  Company Number: US-GLAXOSMITHKLINE-US2021AMR177015

PATIENT
  Sex: Male

DRUGS (1)
  1. NUCALA [Suspect]
     Active Substance: MEPOLIZUMAB
     Indication: Pulmonary vasculitis
     Dosage: 300 MG, Z (EVERY 4 WEEK)
     Route: 058
     Dates: start: 20200325, end: 20210818

REACTIONS (4)
  - Death [Fatal]
  - Cardiac disorder [Unknown]
  - Lung disorder [Unknown]
  - Off label use [Unknown]
